FAERS Safety Report 8240846-5 (Version None)
Quarter: 2012Q1

REPORT INFORMATION
  Report Type: 
  Country: None (occurrence: None)
  Receive Date: 20120328
  Receipt Date: 20120314
  Transmission Date: 20120608
  Serious: Yes (Hospitalization)
  Sender: FDA-Public Use
  Company Number: PHHY2012CH022913

PATIENT
  Age: 59 Year
  Sex: Male

DRUGS (6)
  1. GLUCOPHAGE [Concomitant]
     Route: 048
  2. REMERON [Concomitant]
     Route: 048
     Dates: start: 20120114, end: 20120117
  3. LEVOTHYROXINE SODIUM [Concomitant]
     Route: 048
  4. TAMSULOSIN HCL [Concomitant]
     Route: 048
  5. CLOZAPINE [Suspect]
     Indication: SCHIZOTYPAL PERSONALITY DISORDER
     Dosage: 250 MG DAILY DOSE,  (1-0-0-1.5),
     Route: 048
     Dates: end: 20120117
  6. DIAMICRON [Concomitant]
     Route: 048

REACTIONS (8)
  - PARKINSONISM [None]
  - LIVER INJURY [None]
  - HYPOALBUMINAEMIA [None]
  - LIVER DISORDER [None]
  - NORMOCHROMIC NORMOCYTIC ANAEMIA [None]
  - FAECALOMA [None]
  - HAEMANGIOMA OF LIVER [None]
  - ILEUS [None]
